FAERS Safety Report 16425417 (Version 2)
Quarter: 2019Q3

REPORT INFORMATION
  Report Type: Report from Study
  Country: GB (occurrence: GB)
  Receive Date: 20190613
  Receipt Date: 20190716
  Transmission Date: 20191004
  Serious: Yes (Death, Hospitalization)
  Sender: FDA-Public Use
  Company Number: GB-ROCHE-2290522

PATIENT
  Age: 48 Year
  Sex: Female

DRUGS (51)
  1. IBUPROFEN. [Concomitant]
     Active Substance: IBUPROFEN
     Route: 048
  2. MORPHINE [Concomitant]
     Active Substance: MORPHINE
     Dosage: 0-10  MG
     Route: 042
     Dates: start: 20190324, end: 20190324
  3. DIAMORPHINE [Concomitant]
     Active Substance: DIAMORPHINE
     Route: 042
     Dates: start: 20190514, end: 20190514
  4. LEVOMEPROMAZINE [Concomitant]
     Active Substance: LEVOMEPROMAZINE
     Dosage: LEVOMEPROMAZINE
     Route: 058
     Dates: start: 20190515, end: 20190516
  5. HALOPERIDOL. [Concomitant]
     Active Substance: HALOPERIDOL
     Dosage: END OF LIFE DISTRESS
     Route: 058
     Dates: start: 20190514, end: 20190514
  6. DEXAMETHASONE. [Concomitant]
     Active Substance: DEXAMETHASONE
     Dosage: PROPHYLACTIC
     Route: 058
     Dates: start: 20190514, end: 20190515
  7. TRASTUZUMAB. [Suspect]
     Active Substance: TRASTUZUMAB
     Indication: BREAST CANCER
     Route: 058
     Dates: start: 20170918, end: 20181205
  8. ZOMORPH [Concomitant]
     Active Substance: MORPHINE SULFATE
     Route: 048
     Dates: start: 20171002, end: 20190116
  9. DENOSUMAB [Concomitant]
     Active Substance: DENOSUMAB
     Route: 058
     Dates: start: 20171007, end: 20181120
  10. DIAMORPHINE [Concomitant]
     Active Substance: DIAMORPHINE
     Route: 042
     Dates: start: 20190514, end: 20190515
  11. DIAMORPHINE [Concomitant]
     Active Substance: DIAMORPHINE
     Route: 042
     Dates: start: 20190514, end: 20190515
  12. DIAMORPHINE [Concomitant]
     Active Substance: DIAMORPHINE
     Route: 042
     Dates: start: 20190516, end: 20190517
  13. GLYCOPYRONIUM [Concomitant]
     Active Substance: GLYCOPYRRONIUM
     Dosage: GLYCOPYRONIUM
     Route: 058
     Dates: start: 20190515, end: 20190516
  14. LORAZEPAM. [Concomitant]
     Active Substance: LORAZEPAM
     Dosage: END OF LIFE?DISTRESS
     Route: 048
     Dates: start: 20190514, end: 20190514
  15. DEXAMETHASONE. [Concomitant]
     Active Substance: DEXAMETHASONE
     Dosage: PROPHYLACTIC
     Route: 048
     Dates: start: 20190502, end: 20190509
  16. TRASTUZUMAB EMTANSINE [Suspect]
     Active Substance: ADO-TRASTUZUMAB EMTANSINE
     Indication: BREAST CANCER
     Route: 042
     Dates: start: 20190115
  17. PARACETAMOL [Concomitant]
     Active Substance: ACETAMINOPHEN
     Route: 042
     Dates: end: 20190515
  18. DIAMORPHINE [Concomitant]
     Active Substance: DIAMORPHINE
     Route: 042
     Dates: start: 20190515, end: 20190516
  19. LEVOMEPROMAZINE [Concomitant]
     Active Substance: LEVOMEPROMAZINE
     Dosage: LEVOMEPROMAZINE
     Route: 058
     Dates: start: 20190515, end: 20190515
  20. INHIXA [Concomitant]
     Active Substance: ENOXAPARIN SODIUM
     Dosage: PROPHYLACTIC?FOR DVT/PE
     Route: 058
     Dates: start: 20190501, end: 20190501
  21. ZOMORPH [Concomitant]
     Active Substance: MORPHINE SULFATE
     Route: 048
     Dates: start: 20190116
  22. LAXIDO [Concomitant]
     Active Substance: POLYETHYLENE GLYCOL 3350\POTASSIUM CHLORIDE\SODIUM BICARBONATE\SODIUM CHLORIDE
     Dosage: 1
     Route: 048
  23. SENNA [SENNA ALEXANDRINA] [Concomitant]
     Active Substance: SENNA LEAF
     Dosage: 2 TABLET
     Route: 048
  24. DIAMORPHINE [Concomitant]
     Active Substance: DIAMORPHINE
     Route: 042
     Dates: start: 20190324, end: 20190324
  25. MIDAZOLAM [Concomitant]
     Active Substance: MIDAZOLAM HYDROCHLORIDE
     Route: 058
     Dates: start: 20190515, end: 20190515
  26. DEXAMETHASONE. [Concomitant]
     Active Substance: DEXAMETHASONE
     Dosage: PROPHYLACTIC
     Route: 048
     Dates: start: 20190501, end: 20190501
  27. GABAPENTIN. [Concomitant]
     Active Substance: GABAPENTIN
     Route: 048
     Dates: start: 20181220
  28. MIDAZOLAM [Concomitant]
     Active Substance: MIDAZOLAM HYDROCHLORIDE
     Route: 058
     Dates: start: 20190514, end: 20190515
  29. MIDAZOLAM [Concomitant]
     Active Substance: MIDAZOLAM HYDROCHLORIDE
     Route: 058
     Dates: start: 20190516, end: 20190517
  30. LEVOMEPROMAZINE [Concomitant]
     Active Substance: LEVOMEPROMAZINE
     Dosage: LEVOMEPROMAZINE
     Route: 058
     Dates: start: 20190516, end: 20190517
  31. DIFFLAM [Concomitant]
     Active Substance: BENZYDAMINE HYDROCHLORIDE
     Dosage: MOUTHCARE
     Route: 061
     Dates: start: 20190513, end: 20190513
  32. OTHER AGENTS FOR LOCAL ORAL TREATMENT [Concomitant]
     Route: 048
     Dates: start: 20190516, end: 20190516
  33. CITALOPRAM [Concomitant]
     Active Substance: CITALOPRAM HYDROBROMIDE
     Route: 048
  34. GABAPENTIN. [Concomitant]
     Active Substance: GABAPENTIN
     Route: 048
     Dates: end: 20181220
  35. PARACETAMOL [Concomitant]
     Active Substance: ACETAMINOPHEN
     Route: 048
  36. GLYCOPYRONIUM [Concomitant]
     Active Substance: GLYCOPYRRONIUM
     Dosage: GLYCOPYRONIUM
     Route: 058
     Dates: start: 20190515, end: 20190517
  37. SANDO K [POTASSIUM BICARBONATE;POTASSIUM CHLORIDE] [Concomitant]
     Dosage: 2 TABLET
     Route: 048
     Dates: start: 20190513, end: 20190513
  38. SALBUTAMOL [Concomitant]
     Active Substance: ALBUTEROL
     Dosage: INHALANT
     Route: 065
  39. LANSOPRAZOLE. [Concomitant]
     Active Substance: LANSOPRAZOLE
     Route: 048
  40. MIDAZOLAM [Concomitant]
     Active Substance: MIDAZOLAM HYDROCHLORIDE
     Route: 058
     Dates: start: 20190515, end: 20190516
  41. MIDAZOLAM [Concomitant]
     Active Substance: MIDAZOLAM HYDROCHLORIDE
     Route: 058
     Dates: start: 20190515, end: 20190516
  42. ORAMORPH [MORPHINE SULFATE] [Concomitant]
     Dosage: LIQUID
     Route: 048
     Dates: start: 20190506, end: 20190513
  43. ZOMORPH [Concomitant]
     Active Substance: MORPHINE SULFATE
     Route: 048
     Dates: end: 20171001
  44. GABAPENTIN. [Concomitant]
     Active Substance: GABAPENTIN
     Route: 048
     Dates: start: 20190324, end: 20190513
  45. CALCICHEW D3 FORTE [Concomitant]
     Active Substance: CALCIUM\CHOLECALCIFEROL
     Dosage: 1 TABLET
     Route: 048
     Dates: start: 20171007
  46. DIAMORPHINE [Concomitant]
     Active Substance: DIAMORPHINE
     Route: 042
     Dates: start: 20190515, end: 20190516
  47. MIDAZOLAM [Concomitant]
     Active Substance: MIDAZOLAM HYDROCHLORIDE
     Route: 058
     Dates: start: 20190514, end: 20190514
  48. CARBOCISTEINE [Concomitant]
     Active Substance: CARBOCYSTEINE
     Route: 048
     Dates: start: 20190512, end: 20190513
  49. SALINE [SODIUM CHLORIDE] [Concomitant]
     Active Substance: SODIUM CHLORIDE
     Dosage: NEBULISER 0.9 AMPOULE
     Route: 065
     Dates: start: 20190509, end: 20190515
  50. DEXAMETHASONE. [Concomitant]
     Active Substance: DEXAMETHASONE
     Dosage: PROPHYLACTIC
     Route: 048
     Dates: start: 20190510, end: 20190513
  51. SALBUTAMOL [Concomitant]
     Active Substance: ALBUTEROL
     Route: 065
     Dates: start: 20190512, end: 20190515

REACTIONS (2)
  - Oral candidiasis [Recovered/Resolved]
  - Pneumonia [Fatal]

NARRATIVE: CASE EVENT DATE: 20190508
